FAERS Safety Report 10083356 (Version 1)
Quarter: 2014Q2

REPORT INFORMATION
  Report Type: Spontaneous
  Country: GB (occurrence: GB)
  Receive Date: 20140417
  Receipt Date: 20140417
  Transmission Date: 20141212
  Serious: Yes (Hospitalization)
  Sender: FDA-Public Use
  Company Number: GB-ROCHE-1383675

PATIENT
  Age: 66 Year
  Sex: Female

DRUGS (7)
  1. RITUXIMAB [Suspect]
     Indication: RHEUMATOID ARTHRITIS
     Dosage: MOST RECENT DOSE PRIOR TO SAE:19/DEC/2013
     Route: 045
     Dates: start: 20130516
  2. ADCAL-D3 [Concomitant]
  3. ALENDRONIC ACID [Concomitant]
  4. NAPROXEN [Concomitant]
     Route: 065
  5. OMEPRAZOL [Concomitant]
  6. PARACETAMOL [Concomitant]
  7. PREDNISONE [Concomitant]

REACTIONS (1)
  - Pulmonary embolism [Recovering/Resolving]
